FAERS Safety Report 17901612 (Version 1)
Quarter: 2020Q2

REPORT INFORMATION
  Report Type: Spontaneous
  Country: FR (occurrence: FR)
  Receive Date: 20200616
  Receipt Date: 20200616
  Transmission Date: 20200714
  Serious: Yes (Death)
  Sender: FDA-Public Use
  Company Number: FR-AMNEAL PHARMACEUTICALS-2020-AMRX-01733

PATIENT

DRUGS (2)
  1. DOCETAXEL. [Suspect]
     Active Substance: DOCETAXEL
     Indication: BREAST CANCER
     Dosage: 75 MILLIGRAM/SQ. METER, 2X/DAY, FOR 14 DAYS EVERY 3 WEEKS FOR 6 CYCLES
     Route: 042
  2. CAPECITABINE. [Suspect]
     Active Substance: CAPECITABINE
     Indication: BREAST CANCER
     Dosage: 825 MILLIGRAM/SQ. METER, 2X/DAY FOR 14 DAYS EVERY 3 WEEKS FOR 6 CYCLES
     Route: 048

REACTIONS (1)
  - Adverse event [Fatal]
